FAERS Safety Report 23034540 (Version 1)
Quarter: 2023Q4

REPORT INFORMATION
  Report Type: Spontaneous
  Country: CN (occurrence: CN)
  Receive Date: 20231005
  Receipt Date: 20231005
  Transmission Date: 20240110
  Serious: Yes (Hospitalization, Other)
  Sender: FDA-Public Use
  Company Number: None

PATIENT
  Sex: Male
  Weight: 22 kg

DRUGS (14)
  1. CYCLOPHOSPHAMIDE [Suspect]
     Active Substance: CYCLOPHOSPHAMIDE
     Indication: Chemotherapy
     Dosage: UNK
     Route: 065
  2. CYCLOPHOSPHAMIDE [Suspect]
     Active Substance: CYCLOPHOSPHAMIDE
     Indication: Brain neoplasm malignant
     Dosage: 600 MG, ONE TIME IN ONE DAY, DILUTED WITH 400 ML OF 0.9% SODIUM CHLORIDE, FIRST DAY
     Route: 041
     Dates: start: 20230906, end: 20230906
  3. CYCLOPHOSPHAMIDE [Suspect]
     Active Substance: CYCLOPHOSPHAMIDE
     Dosage: 600 MG, ONE TIME IN ONE DAY, DILUTED WITH 400 ML OF 0.9% SODIUM CHLORIDE, SECOND DAY
     Route: 041
     Dates: start: 20230907, end: 20230907
  4. SODIUM CHLORIDE [Suspect]
     Active Substance: SODIUM CHLORIDE
     Indication: Medication dilution
     Dosage: 400 ML, ONE TIME IN ONE DAY, STRENGTH: 0.9%, DOSAGE FORM: INJECTION, USED TO DILUTE 600 MG CYCLOPHOS
     Route: 041
     Dates: start: 20230906, end: 20230906
  5. SODIUM CHLORIDE [Suspect]
     Active Substance: SODIUM CHLORIDE
     Dosage: 400 ML, ONE TIME IN ONE DAY, STRENGTH: 0.9%, DOSAGE FORM: INJECTION, USED TO DILUTE 600 MG CYCLOPHOS
     Route: 041
     Dates: start: 20230907, end: 20230907
  6. SODIUM CHLORIDE [Suspect]
     Active Substance: SODIUM CHLORIDE
     Dosage: 20 ML, ONE TIME IN ONE DAY, STRENGTH: 0.9%, DOSAGE FORM: INJECTION, USED TO DILUTE 1.2 MG VINCRISTIN
     Route: 041
     Dates: start: 20230906, end: 20230906
  7. SODIUM CHLORIDE [Suspect]
     Active Substance: SODIUM CHLORIDE
     Dosage: 500 ML, ONE TIME IN ONE DAY, STRENGTH: 0.9%, DOSAGE FORM: INJECTION, USED TO DILUTE 60 MG CISPLATIN
     Route: 041
     Dates: start: 20230906, end: 20230906
  8. SODIUM CHLORIDE [Suspect]
     Active Substance: SODIUM CHLORIDE
     Dosage: 20 ML, ONE TIME IN ONE DAY, STRENGTH: 0.9%, DOSAGE FORM: INJECTION, USED TO DILUTE 2.5 MG VINDESINE
     Route: 042
     Dates: start: 20230913, end: 20230913
  9. VINDESINE SULFATE [Suspect]
     Active Substance: VINDESINE SULFATE
     Indication: Chemotherapy
     Dosage: 2.5 MG, ONE TIME IN ONE DAY, DILUTED WITH 20 ML OF 0.9% SODIUM CHLORIDE, EIGHTH DAY
     Route: 042
     Dates: start: 20230913, end: 20230913
  10. VINDESINE SULFATE [Suspect]
     Active Substance: VINDESINE SULFATE
     Indication: Brain neoplasm malignant
  11. VINCRISTINE SULFATE [Suspect]
     Active Substance: VINCRISTINE SULFATE
     Indication: Chemotherapy
     Dosage: UNK
     Route: 065
  12. VINCRISTINE SULFATE [Suspect]
     Active Substance: VINCRISTINE SULFATE
     Indication: Brain neoplasm malignant
     Dosage: 1.2 MG, ONE TIME IN ONE DAY, DILUTED WITH 20 ML OF 0.9% SODIUM CHLORIDE
     Route: 041
     Dates: start: 20230906, end: 20230906
  13. CISPLATIN [Suspect]
     Active Substance: CISPLATIN
     Indication: Chemotherapy
     Dosage: UNK
     Route: 065
  14. CISPLATIN [Suspect]
     Active Substance: CISPLATIN
     Indication: Brain neoplasm malignant
     Dosage: 60 MG, ONE TIME IN ONE DAY, DILUTED WITH 500 ML OF 0.9% SODIUM CHLORIDE, LYOPHILIZED
     Route: 041
     Dates: start: 20230906, end: 20230906

REACTIONS (1)
  - Myelosuppression [Not Recovered/Not Resolved]
